FAERS Safety Report 22915239 (Version 2)
Quarter: 2024Q2

REPORT INFORMATION
  Report Type: Spontaneous
  Country: GB (occurrence: GB)
  Receive Date: 20230907
  Receipt Date: 20240517
  Transmission Date: 20240716
  Serious: Yes (Hospitalization, Other)
  Sender: FDA-Public Use
  Company Number: GB-002147023-NVSC2023GB006503

PATIENT
  Age: 24 Year
  Sex: Male

DRUGS (93)
  1. CLOZARIL [Suspect]
     Active Substance: CLOZAPINE
     Dosage: 1 DOSAGE FORM
     Route: 048
     Dates: start: 20181231
  2. CLOZARIL [Suspect]
     Active Substance: CLOZAPINE
     Dosage: 1 DOSAGE FORM, QD
     Route: 048
     Dates: start: 20181115, end: 20181231
  3. CLOZARIL [Suspect]
     Active Substance: CLOZAPINE
     Dosage: 1 DOSAGE FORM, QD
     Route: 048
     Dates: start: 20181212, end: 20181231
  4. CLOZARIL [Suspect]
     Active Substance: CLOZAPINE
     Dosage: 1 DOSAGE FORM, QD
     Route: 048
     Dates: start: 20181221, end: 20181230
  5. CLOZARIL [Suspect]
     Active Substance: CLOZAPINE
     Dosage: 1 DOSAGE FORM, QD
     Route: 048
     Dates: start: 20181230
  6. CLOZARIL [Suspect]
     Active Substance: CLOZAPINE
     Dosage: 1 DOSAGE FORM, QD
     Route: 065
     Dates: start: 20191120, end: 20191202
  7. CLOZARIL [Suspect]
     Active Substance: CLOZAPINE
     Dosage: 1 DOSAGE FORM
     Route: 048
     Dates: start: 20181231
  8. CLOZARIL [Suspect]
     Active Substance: CLOZAPINE
     Dosage: 1 DOSAGE FORM
     Route: 048
     Dates: start: 20211231
  9. CLOZARIL [Suspect]
     Active Substance: CLOZAPINE
     Indication: Schizophrenia
     Dosage: 1 DOSAGE FORM
     Route: 065
     Dates: start: 201811
  10. CLOZARIL [Suspect]
     Active Substance: CLOZAPINE
     Dosage: 1 DOSAGE FORM
     Route: 065
     Dates: start: 20191202
  11. CLOZARIL [Suspect]
     Active Substance: CLOZAPINE
     Dosage: UNK
     Route: 065
     Dates: start: 20181115
  12. CLOZARIL [Suspect]
     Active Substance: CLOZAPINE
     Dosage: UNK
     Route: 065
     Dates: start: 20181231
  13. CLOZARIL [Suspect]
     Active Substance: CLOZAPINE
     Dosage: UNK
     Route: 065
     Dates: start: 20211231
  14. CLOZARIL [Suspect]
     Active Substance: CLOZAPINE
     Dosage: UNK
     Route: 065
     Dates: start: 201811
  15. CLOZARIL [Suspect]
     Active Substance: CLOZAPINE
     Dosage: UNK (CUMULATIVE DOSE; 33 DOSAGE FORM)
     Route: 048
     Dates: start: 20181130
  16. CLOZARIL [Suspect]
     Active Substance: CLOZAPINE
     Dosage: UNK, QD
     Route: 048
     Dates: start: 20181212, end: 20181231
  17. OLANZAPINE [Suspect]
     Active Substance: OLANZAPINE
     Indication: Schizophrenia
     Dosage: UNK
     Route: 065
     Dates: start: 201801
  18. OLANZAPINE [Suspect]
     Active Substance: OLANZAPINE
     Dosage: UNK
     Route: 065
     Dates: start: 20181130
  19. OLANZAPINE [Suspect]
     Active Substance: OLANZAPINE
     Dosage: UNK
     Route: 065
     Dates: start: 201811
  20. OLANZAPINE [Suspect]
     Active Substance: OLANZAPINE
     Dosage: UNK
     Route: 065
  21. OLANZAPINE [Suspect]
     Active Substance: OLANZAPINE
     Dosage: UNK
     Route: 065
  22. OLANZAPINE [Suspect]
     Active Substance: OLANZAPINE
     Dosage: UNK
     Route: 065
  23. CLONAZEPAM [Concomitant]
     Active Substance: CLONAZEPAM
     Dosage: 2.5 ML, QID (10 ML (2.5 MILLILITER, FOUR TIMES/DAY)
     Route: 048
     Dates: start: 201811
  24. CLONAZEPAM [Concomitant]
     Active Substance: CLONAZEPAM
     Dosage: 10 ML, QD
     Route: 048
  25. CLONAZEPAM [Concomitant]
     Active Substance: CLONAZEPAM
     Dosage: 10 ML, QD
     Route: 065
  26. CLONAZEPAM [Concomitant]
     Active Substance: CLONAZEPAM
     Dosage: 10 ML, QD (2.5 MILLILITER, QID)
     Route: 065
  27. CLONAZEPAM [Concomitant]
     Active Substance: CLONAZEPAM
     Dosage: 2.5 ML, QID
     Route: 048
  28. CLONAZEPAM [Concomitant]
     Active Substance: CLONAZEPAM
     Dosage: 15 ML, QD
     Route: 005
  29. CLONAZEPAM [Concomitant]
     Active Substance: CLONAZEPAM
     Dosage: 15 ML, QD
     Route: 065
  30. CLONAZEPAM [Concomitant]
     Active Substance: CLONAZEPAM
     Dosage: 160 ML (40 MILLILITER, QID)
     Route: 048
  31. CLONAZEPAM [Concomitant]
     Active Substance: CLONAZEPAM
     Dosage: 160 ML (40 MILLILITER, QID)
     Route: 065
  32. CLONAZEPAM [Concomitant]
     Active Substance: CLONAZEPAM
     Indication: Product used for unknown indication
     Dosage: 2.5 ML, QD
     Route: 048
  33. CLONAZEPAM [Concomitant]
     Active Substance: CLONAZEPAM
     Dosage: 2.5 ML, QD
     Route: 048
     Dates: start: 201811
  34. CLONAZEPAM [Concomitant]
     Active Substance: CLONAZEPAM
     Dosage: 2.5 ML, QD
     Route: 048
  35. CLONAZEPAM [Concomitant]
     Active Substance: CLONAZEPAM
     Dosage: 40 ML, QD
     Route: 048
  36. CLONAZEPAM [Concomitant]
     Active Substance: CLONAZEPAM
     Dosage: 40 ML, QD (10 ML, QID)
     Route: 005
  37. CLONAZEPAM [Concomitant]
     Active Substance: CLONAZEPAM
     Dosage: 40 ML, QD (10 ML, QID)
     Route: 065
     Dates: start: 201811
  38. CLONAZEPAM [Concomitant]
     Active Substance: CLONAZEPAM
     Dosage: 40 ML, QD (10 ML, QID)
     Route: 065
  39. CLONAZEPAM [Concomitant]
     Active Substance: CLONAZEPAM
     Dosage: 40 ML, QD (2.5 MILLILITER, QID/ 10 MILLILITER, ONCE A DAY)
     Route: 065
  40. CLONAZEPAM [Concomitant]
     Active Substance: CLONAZEPAM
     Dosage: UNK
     Route: 065
     Dates: start: 201811
  41. CLONAZEPAM [Concomitant]
     Active Substance: CLONAZEPAM
     Dosage: UNK
     Route: 065
  42. LI LIQUID [Concomitant]
     Dosage: 10 ML, QD (AM)
     Route: 065
  43. LI LIQUID [Concomitant]
     Indication: Product used for unknown indication
     Dosage: 10 ML (AM)
     Route: 065
  44. LI LIQUID [Concomitant]
     Dosage: 20 MMOL (PM)
     Route: 065
  45. LI LIQUID [Concomitant]
     Dosage: UNK
     Route: 065
  46. LITHIUM CITRATE [Concomitant]
     Active Substance: LITHIUM CITRATE
     Dosage: 1 DOSAGE FORM, QD
     Route: 005
  47. LITHIUM CITRATE [Concomitant]
     Active Substance: LITHIUM CITRATE
     Dosage: 1 DOSAGE FORM, QD
     Route: 005
  48. LITHIUM CITRATE [Concomitant]
     Active Substance: LITHIUM CITRATE
     Dosage: 1 DOSAGE FORM, QD
     Route: 005
  49. LITHIUM CITRATE [Concomitant]
     Active Substance: LITHIUM CITRATE
     Indication: Product used for unknown indication
     Dosage: 1 DOSAGE FORM, QD (PM 15 ML, 600 MG)
     Route: 005
  50. LITHIUM CITRATE [Concomitant]
     Active Substance: LITHIUM CITRATE
     Dosage: 1 DOSAGE FORM, QD (PM 15 ML, 600 MG)
     Route: 005
  51. LITHIUM CITRATE [Concomitant]
     Active Substance: LITHIUM CITRATE
     Dosage: 1 DOSAGE FORM, QD, (PM)
     Route: 005
  52. LITHIUM CITRATE [Concomitant]
     Active Substance: LITHIUM CITRATE
     Dosage: 1 DOSAGE FORM, QD, (PM)
     Route: 005
  53. LITHIUM CITRATE [Concomitant]
     Active Substance: LITHIUM CITRATE
     Dosage: 1 DOSAGE FORM, QD, (PM)
     Route: 005
  54. LITHIUM CITRATE [Concomitant]
     Active Substance: LITHIUM CITRATE
     Dosage: 1 DOSAGE FORM, QD,(ONCE A DAY 1 OT, QD (UNK, PM)
     Route: 005
  55. LITHIUM CITRATE [Concomitant]
     Active Substance: LITHIUM CITRATE
     Dosage: 15 ML, QD (600 MG )
     Route: 005
  56. LITHIUM CITRATE [Concomitant]
     Active Substance: LITHIUM CITRATE
     Dosage: 15 ML, QD (600 MG DAILY, NOCTE)
     Route: 005
  57. LITHIUM CITRATE [Concomitant]
     Active Substance: LITHIUM CITRATE
     Dosage: 15 ML, QD (600 MG)
     Route: 005
  58. LITHIUM CITRATE [Concomitant]
     Active Substance: LITHIUM CITRATE
     Dosage: 15 ML, QD (600 MG)
     Route: 005
  59. LITHIUM CITRATE [Concomitant]
     Active Substance: LITHIUM CITRATE
     Dosage: 15 ML, QD (600 MG)
     Route: 005
  60. LITHIUM CITRATE [Concomitant]
     Active Substance: LITHIUM CITRATE
     Dosage: 30 ML, QD (15ML (600 MG) NOCTE, QD15 MILLILITER, QD)
     Route: 005
  61. LITHIUM CITRATE [Concomitant]
     Active Substance: LITHIUM CITRATE
     Dosage: 30 ML, QD (15ML (600 MG) NOCTE, QD15 MILLILITER, QD)
     Route: 005
  62. LITHIUM CITRATE [Concomitant]
     Active Substance: LITHIUM CITRATE
     Dosage: UNK, QD (PM)
     Route: 005
  63. LITHIUM CITRATE [Concomitant]
     Active Substance: LITHIUM CITRATE
     Dosage: UNK
     Route: 005
  64. LITHIUM CITRATE [Concomitant]
     Active Substance: LITHIUM CITRATE
     Dosage: UNK
     Route: 005
  65. LITHIUM CITRATE [Concomitant]
     Active Substance: LITHIUM CITRATE
     Dosage: UNK
     Route: 005
  66. LITHIUM CITRATE [Concomitant]
     Active Substance: LITHIUM CITRATE
     Dosage: UNK (PM)
     Route: 005
  67. QUETIAPINE [Concomitant]
     Active Substance: QUETIAPINE
     Indication: Product used for unknown indication
     Dosage: 10 ML, QD
     Route: 065
  68. QUETIAPINE [Concomitant]
     Active Substance: QUETIAPINE
     Dosage: 10 ML, QD (AM)
     Route: 065
  69. QUETIAPINE [Concomitant]
     Active Substance: QUETIAPINE
     Dosage: 10 ML (AM)
     Route: 065
  70. QUETIAPINE [Concomitant]
     Active Substance: QUETIAPINE
     Dosage: 20 MMOL (PM)
     Route: 005
  71. QUETIAPINE [Concomitant]
     Active Substance: QUETIAPINE
     Dosage: 20 MMOL (PM)
     Route: 065
  72. QUETIAPINE [Concomitant]
     Active Substance: QUETIAPINE
     Dosage: 20 MMOL (PM)
     Route: 065
  73. QUETIAPINE [Concomitant]
     Active Substance: QUETIAPINE
     Dosage: 20 MMOL (PM)
     Route: 065
  74. QUETIAPINE [Concomitant]
     Active Substance: QUETIAPINE
     Dosage: UNK
     Route: 065
  75. VALPROATE SODIUM [Concomitant]
     Active Substance: VALPROATE SODIUM
     Indication: Product used for unknown indication
     Dosage: 18.75 MMOL, QD
     Route: 065
  76. VALPROATE SODIUM [Concomitant]
     Active Substance: VALPROATE SODIUM
     Dosage: 18.75 MMOL, QD
     Route: 065
  77. VALPROATE SODIUM [Concomitant]
     Active Substance: VALPROATE SODIUM
     Dosage: 18.75 MMOL, QD
     Route: 065
  78. VALPROATE SODIUM [Concomitant]
     Active Substance: VALPROATE SODIUM
     Dosage: 18.75 MMOL, QD (AM)
     Route: 065
  79. VALPROATE SODIUM [Concomitant]
     Active Substance: VALPROATE SODIUM
     Dosage: 18.75 MMOL
     Route: 065
  80. VALPROATE SODIUM [Concomitant]
     Active Substance: VALPROATE SODIUM
     Dosage: 20 MMOL, QD
     Route: 065
  81. VALPROATE SODIUM [Concomitant]
     Active Substance: VALPROATE SODIUM
     Dosage: 25 MMOL, QD
     Route: 065
  82. VALPROATE SODIUM [Concomitant]
     Active Substance: VALPROATE SODIUM
     Dosage: 25 MMOL, QD
     Route: 065
  83. VALPROATE SODIUM [Concomitant]
     Active Substance: VALPROATE SODIUM
     Dosage: 25 MMOL, QD (AM)
     Route: 065
  84. VALPROATE SODIUM [Concomitant]
     Active Substance: VALPROATE SODIUM
     Dosage: 25 MMOL, QD (PM)
     Route: 065
  85. VALPROATE SODIUM [Concomitant]
     Active Substance: VALPROATE SODIUM
     Dosage: 25 MMOL, QD (PM)
     Route: 065
  86. VALPROATE SODIUM [Concomitant]
     Active Substance: VALPROATE SODIUM
     Dosage: UNK UNK, QD (AM)
     Route: 065
  87. VALPROATE SODIUM [Concomitant]
     Active Substance: VALPROATE SODIUM
     Dosage: UNK, QD
     Route: 065
  88. VALPROATE SODIUM [Concomitant]
     Active Substance: VALPROATE SODIUM
     Dosage: UNK, QD (AM)
     Route: 065
  89. VALPROATE SODIUM [Concomitant]
     Active Substance: VALPROATE SODIUM
     Dosage: UNK, (AM)
     Route: 065
  90. VALPROIC ACID [Concomitant]
     Active Substance: VALPROIC ACID
     Dosage: 18.75 MMOL, QD (AM)
     Route: 065
  91. VALPROIC ACID [Concomitant]
     Active Substance: VALPROIC ACID
     Indication: Product used for unknown indication
     Dosage: 25 MMOL, QD
     Route: 065
  92. VALPROIC ACID [Concomitant]
     Active Substance: VALPROIC ACID
     Dosage: 25 MMOL, QD
     Route: 065
  93. VALPROIC ACID [Concomitant]
     Active Substance: VALPROIC ACID
     Dosage: 25 MMOL, QD
     Route: 065

REACTIONS (5)
  - Neutrophil count increased [Recovered/Resolved]
  - White blood cell count increased [Recovered/Resolved]
  - Eosinophilia [Recovered/Resolved]
  - Drug ineffective [Unknown]
  - Off label use [Unknown]

NARRATIVE: CASE EVENT DATE: 20200731
